FAERS Safety Report 17180179 (Version 1)
Quarter: 2019Q4

REPORT INFORMATION
  Report Type: Spontaneous
  Country: GB (occurrence: GB)
  Receive Date: 20191219
  Receipt Date: 20191219
  Transmission Date: 20200122
  Serious: Yes (Hospitalization)
  Sender: FDA-Public Use
  Company Number: GB-PFIZER INC-2019542715

PATIENT
  Age: 38 Year
  Sex: Female

DRUGS (3)
  1. FLUDARABINE [Suspect]
     Active Substance: FLUDARABINE PHOSPHATE
     Dosage: UNK
  2. CYTARABINE. [Suspect]
     Active Substance: CYTARABINE
     Dosage: UNK
  3. IDARUBICIN HCL [Suspect]
     Active Substance: IDARUBICIN HYDROCHLORIDE
     Dosage: UNK

REACTIONS (8)
  - Nausea [Unknown]
  - Sepsis [Unknown]
  - Pneumonia fungal [Unknown]
  - Vomiting [Unknown]
  - Alopecia [Unknown]
  - Fatigue [Unknown]
  - Muscle atrophy [Unknown]
  - Ear infection [Unknown]
